FAERS Safety Report 24043449 (Version 1)
Quarter: 2024Q3

REPORT INFORMATION
  Report Type: Spontaneous
  Country: FR (occurrence: FR)
  Receive Date: 20240703
  Receipt Date: 20240703
  Transmission Date: 20241017
  Serious: Yes (Other)
  Sender: STRIDES
  Company Number: FR-STRIDES ARCOLAB LIMITED-2024SP007808

PATIENT

DRUGS (6)
  1. PREDNISOLONE [Suspect]
     Active Substance: PREDNISOLONE
     Indication: Giant cell arteritis
     Dosage: 0.9 MILLIGRAM/KILOGRAM, QD
     Route: 048
  2. PREDNISOLONE [Suspect]
     Active Substance: PREDNISOLONE
     Indication: Retinal ischaemia
  3. PREDNISOLONE [Suspect]
     Active Substance: PREDNISOLONE
     Indication: Eye disorder prophylaxis
  4. METHYLPREDNISOLONE [Suspect]
     Active Substance: METHYLPREDNISOLONE
     Indication: Giant cell arteritis
     Dosage: UNK, (PULSE)
     Route: 042
  5. METHYLPREDNISOLONE [Suspect]
     Active Substance: METHYLPREDNISOLONE
     Indication: Retinal ischaemia
  6. METHYLPREDNISOLONE [Suspect]
     Active Substance: METHYLPREDNISOLONE
     Indication: Eye disorder prophylaxis

REACTIONS (1)
  - Angina pectoris [Unknown]
